FAERS Safety Report 7978072-7 (Version None)
Quarter: 2011Q4

REPORT INFORMATION
  Report Type: 
  Country: None (occurrence: None)
  Receive Date: 20111214
  Receipt Date: 20111205
  Transmission Date: 20120403
  Serious: Yes (Hospitalization)
  Sender: FDA-Public Use
  Company Number: NL-AMGEN-NLDCT2011064118

PATIENT
  Sex: Female

DRUGS (19)
  1. FLUNARIZINE [Concomitant]
     Dosage: UNK
  2. PARACETAMOL WITH CODEINE PHOSPHATE [Concomitant]
     Dosage: UNK
  3. HYDROCHLOROTHIAZIDE [Concomitant]
     Dosage: UNK
  4. LYRICA [Concomitant]
     Dosage: UNK
  5. ETANERCEPT [Suspect]
     Indication: PSORIASIS
     Dosage: 50 MG, UNK
     Dates: start: 20110607, end: 20110615
  6. LIPITOR [Concomitant]
     Dosage: UNK
  7. PANTOPRAZOLE [Concomitant]
     Dosage: UNK
  8. AUGMENTIN '125' [Suspect]
     Dosage: UNK
  9. LISINOPRIL [Concomitant]
     Dosage: UNK
  10. CLOPIDOGREL [Concomitant]
     Dosage: UNK
  11. OXAZEPAM [Concomitant]
  12. ASCAL                              /00002702/ [Concomitant]
     Dosage: UNK
  13. IVABRADINE [Concomitant]
     Dosage: UNK
  14. BUMETANIDE [Concomitant]
  15. STEDIRIL                           /00022701/ [Concomitant]
     Dosage: UNK
  16. INSULIN [Concomitant]
     Dosage: UNK
  17. ISORDIL [Concomitant]
     Dosage: UNK
  18. SPIRIVA [Concomitant]
     Dosage: UNK
  19. LANTUS [Concomitant]
     Dosage: UNK

REACTIONS (3)
  - RENAL FAILURE [None]
  - WOUND INFECTION [None]
  - DEHYDRATION [None]
